FAERS Safety Report 13074847 (Version 1)
Quarter: 2016Q4

REPORT INFORMATION
  Report Type: Spontaneous
  Country: US (occurrence: US)
  Receive Date: 20161230
  Receipt Date: 20161230
  Transmission Date: 20170207
  Serious: No
  Sender: FDA-Public Use
  Company Number: US-TEVA-723732ACC

PATIENT
  Sex: Male

DRUGS (1)
  1. ACETAZOLAMIDE EXTENDED-RELEASE CAPSULES [Suspect]
     Active Substance: ACETAZOLAMIDE
     Indication: GLAUCOMA

REACTIONS (2)
  - Weight decreased [Unknown]
  - Dysgeusia [Unknown]
